FAERS Safety Report 17743278 (Version 3)
Quarter: 2020Q2

REPORT INFORMATION
  Report Type: Spontaneous
  Country: IT (occurrence: IT)
  Receive Date: 20200504
  Receipt Date: 20200518
  Transmission Date: 20200714
  Serious: Yes (Death)
  Sender: FDA-Public Use
  Company Number: IT-MYLANLABS-2020M1043276

PATIENT
  Age: 75 Year
  Sex: Female

DRUGS (2)
  1. CLEXANE [Interacting]
     Active Substance: ENOXAPARIN SODIUM
     Indication: CARDIO-RESPIRATORY ARREST
     Dosage: 6000 INTERNATIONAL UNIT, QD
     Route: 058
  2. CITALOPRAM [Suspect]
     Active Substance: CITALOPRAM HYDROBROMIDE
     Indication: PRODUCT USED FOR UNKNOWN INDICATION
     Dosage: UNK

REACTIONS (3)
  - Anaemia [Fatal]
  - Acute respiratory failure [Fatal]
  - Drug interaction [Fatal]

NARRATIVE: CASE EVENT DATE: 20190913
